FAERS Safety Report 12178592 (Version 3)
Quarter: 2016Q1

REPORT INFORMATION
  Report Type: Spontaneous
  Country: US (occurrence: US)
  Receive Date: 20160315
  Receipt Date: 20160330
  Transmission Date: 20160526
  Serious: Yes (Death, Disabling, Other)
  Sender: FDA-Public Use
  Company Number: PHEH2016US005951

PATIENT
  Age: 90 Year
  Sex: Male
  Weight: 77.1 kg

DRUGS (1)
  1. AFINITOR [Suspect]
     Active Substance: EVEROLIMUS
     Indication: RENAL CELL CARCINOMA
     Dosage: 7.5 MG, QD
     Route: 048
     Dates: end: 20160205

REACTIONS (10)
  - Malaise [Fatal]
  - Dyspnoea [Fatal]
  - Blood creatinine increased [Unknown]
  - General physical health deterioration [Unknown]
  - Nasopharyngitis [Unknown]
  - Blood urea increased [Unknown]
  - Platelet count decreased [Unknown]
  - Cough [Fatal]
  - Pneumonia [Fatal]
  - Pyrexia [Fatal]

NARRATIVE: CASE EVENT DATE: 20151230
